FAERS Safety Report 9767539 (Version 1)
Quarter: 2013Q3

REPORT INFORMATION
  Report Type: Spontaneous
  Country: US (occurrence: None)
  Receive Date: 20130827
  Receipt Date: 20130827
  Transmission Date: 20140515
  Serious: Yes (Disabling, Other)
  Sender: FDA-Public Use
  Company Number: 163-21880-13053659

PATIENT
  Age: 76 Year
  Sex: Female
  Weight: 132 kg

DRUGS (25)
  1. REVLIMID [Suspect]
     Indication: PLASMA CELL MYELOMA
     Dosage: 21 IN 28 D
     Route: 048
     Dates: start: 20101214
  2. ALLOPURINOL [Concomitant]
  3. ASPIRIN (ACETYLSALICYLIC ACID) [Concomitant]
  4. CALCIUM [Concomitant]
  5. CENTRUM [Concomitant]
  6. GABAPENTIN [Concomitant]
  7. GLIPIZIDE [Concomitant]
  8. HUMULIN (NOVOLIN 20/80) [Concomitant]
  9. IRON [Concomitant]
  10. LOVAZA (OMEGA-3 MARINE TRIGLYCERIDES) [Concomitant]
  11. LOVENOX (HEPARIN-FRACTION, SODIUM SALT) [Concomitant]
  12. ONDANSETRON [Concomitant]
  13. POTASSIUM [Concomitant]
  14. PROCHLORPERAZINE [Concomitant]
  15. SPIRONOLACTONE [Concomitant]
  16. SYNTHROID (LEVOTHYROXINE SODIUM) [Concomitant]
  17. TYLENOL (PARACETAMOL) [Concomitant]
  18. VITAMIN D (ERGOCALCIFEROL) [Concomitant]
  19. ZETIA (EZETIMIBE) [Concomitant]
  20. FUROSEMIDE [Concomitant]
  21. LEVOTHROID (LEVOTHYROXINE SODIUM) [Concomitant]
  22. ZYLOPRIM (ALLOPURINOL) [Concomitant]
  23. MVI [Concomitant]
  24. PRAVASTATIN SODIUM [Concomitant]
  25. METOLAZONE [Concomitant]

REACTIONS (16)
  - Breast cancer female [None]
  - Malaise [None]
  - Dysphonia [None]
  - Bronchitis [None]
  - Cough [None]
  - Nausea [None]
  - Aortic stenosis [None]
  - Cardiac failure congestive [None]
  - Oestrogen receptor assay positive [None]
  - Progesterone receptor assay positive [None]
  - Invasive ductal breast carcinoma [None]
  - Haemoglobin decreased [None]
  - Haematocrit decreased [None]
  - Platelet count decreased [None]
  - Blood albumin decreased [None]
  - White blood cell count decreased [None]
